FAERS Safety Report 5877337-2 (Version None)
Quarter: 2008Q3

REPORT INFORMATION
  Report Type: 
  Country: None (occurrence: None)
  Receive Date: 20080910
  Receipt Date: 20080822
  Transmission Date: 20090109
  Serious: Yes (Other)
  Sender: FDA-Public Use
  Company Number: GB-GENENTECH-267617

PATIENT
  Age: 49 Year
  Sex: Male

DRUGS (3)
  1. RITUXAN [Suspect]
     Indication: VOGT-KOYANAGI-HARADA SYNDROME
  2. TACROLIMUS [Suspect]
     Indication: VOGT-KOYANAGI-HARADA SYNDROME
  3. PREDNISOLONE [Concomitant]
     Indication: VOGT-KOYANAGI-HARADA SYNDROME

REACTIONS (1)
  - PHAEHYPHOMYCOSIS [None]
